FAERS Safety Report 8516519-8 (Version None)
Quarter: 2012Q3

REPORT INFORMATION
  Report Type: 
  Country: None (occurrence: None)
  Receive Date: 20120711
  Receipt Date: 20120711
  Transmission Date: 20120928
  Serious: Yes (Hospitalization)
  Sender: FDA-Public Use
  Company Number: None

PATIENT
  Age: 52 Year
  Sex: Female
  Weight: 68.2 kg

DRUGS (8)
  1. SAVELLA [Suspect]
     Indication: MYOFASCIAL PAIN SYNDROME
     Dosage: SAVELLA 12.5 MG QD PO
     Route: 048
     Dates: start: 20120629
  2. SAVELLA [Suspect]
     Indication: FIBROMYALGIA
     Dosage: SAVELLA 12.5 MG QD PO
     Route: 048
     Dates: start: 20120629
  3. BUSPAR [Concomitant]
  4. PERCOCET [Concomitant]
  5. VALIUM [Concomitant]
  6. GABAPENTIN [Concomitant]
  7. DOXEPIN [Concomitant]
  8. PAXIL [Concomitant]

REACTIONS (10)
  - RADICULITIS [None]
  - TACHYCARDIA [None]
  - HYPERTENSION [None]
  - FIBROMYALGIA [None]
  - TREMOR [None]
  - SEROTONIN SYNDROME [None]
  - MYOFASCIAL PAIN SYNDROME [None]
  - HEADACHE [None]
  - JOINT DISLOCATION [None]
  - DEPRESSION [None]
